FAERS Safety Report 9836875 (Version 1)
Quarter: 2013Q4

REPORT INFORMATION
  Report Type: Spontaneous
  Country: US (occurrence: None)
  Receive Date: 20131121
  Receipt Date: 20131121
  Transmission Date: 20140711
  Serious: No
  Sender: FDA-Public Use
  Company Number: 1000048057

PATIENT
  Age: 71 Year
  Sex: Male

DRUGS (6)
  1. TUDORZA PRESSAIR (ACLIDINIUM BROMIDE) (400 MICROGRAM, POWDER) [Suspect]
     Indication: CHRONIC OBSTRUCTIVE PULMONARY DISEASE
     Dosage: 800MCG (400 MCG, 2 IN 1 D), RESPIRATORY (INHALATION)?
     Route: 055
     Dates: start: 201306, end: 20130714
  2. ISOSORBIDE (ISOSORBIDE) (ISOSORBIDE) [Concomitant]
  3. METOPROLOL (METOPROLOL) (METOPROLOL) [Concomitant]
  4. ASPIRIN (ACETYLSALICYLIC ACID0 (ACETYLSALICYLIC ACID) [Concomitant]
  5. SIMVASTATIN (SIMVASTATIN) (SIMVASTATIN) [Concomitant]
  6. TEMAZEPAM (TEMAZEPAM) (TEMAZEPAM) [Concomitant]

REACTIONS (1)
  - Blood urine present [None]
